FAERS Safety Report 20802564 (Version 1)
Quarter: 2022Q2

REPORT INFORMATION
  Report Type: Spontaneous
  Country: US (occurrence: None)
  Receive Date: 20220509
  Receipt Date: 20220509
  Transmission Date: 20220721
  Serious: No
  Sender: FDA-Public Use
  Company Number: None

PATIENT
  Age: 26 Year
  Sex: Male

DRUGS (1)
  1. SULFAMETHOXAZOLE\TRIMETHOPRIM [Suspect]
     Active Substance: SULFAMETHOXAZOLE\TRIMETHOPRIM
     Indication: Cellulitis
     Dates: start: 20220201, end: 20220208

REACTIONS (5)
  - Hypersensitivity [None]
  - Pyrexia [None]
  - Rash [None]
  - Erythema multiforme [None]
  - Serum sickness [None]

NARRATIVE: CASE EVENT DATE: 20220208
